FAERS Safety Report 17579279 (Version 1)
Quarter: 2020Q1

REPORT INFORMATION
  Report Type: Spontaneous
  Country: NL (occurrence: NL)
  Receive Date: 20200325
  Receipt Date: 20200325
  Transmission Date: 20200409
  Serious: Yes (Hospitalization)
  Sender: FDA-Public Use
  Company Number: NL-TEVA-2020-NL-1208997

PATIENT
  Sex: Male
  Weight: 90 kg

DRUGS (17)
  1. ALLOPURINOL. [Concomitant]
     Active Substance: ALLOPURINOL
     Dosage: TABLET, 100 MG (MILLIGRAM)
  2. NATRIUMWATERSTOFCARBONAAT [Concomitant]
     Dosage: TABLET, 500 MG (MILLIGRAM)
  3. TRIAMCINOLONACETONIDE [Concomitant]
     Active Substance: TRIAMCINOLONE ACETONIDE
     Dosage: CREME, 1 MG/G (MILLIGRAM PER GRAM), UNIT DOSE : 1 DOSAGE FORM
  4. PANTOPRAZOLE [Suspect]
     Active Substance: PANTOPRAZOLE
     Indication: PROPHYLAXIS
     Dosage: 120 MILLIGRAM DAILY; 1 PIECE 3 TIMES A DAY
     Dates: start: 201910, end: 20200303
  5. SALBUTAMOL [Concomitant]
     Active Substance: ALBUTEROL
     Dosage: INHALATION POWDER, 200 ?G / DOSE (MICROGRAMS PER DOSE), UNIT DOSE : 1 DOSAGE FORM
  6. LEVOMENTHOL [Concomitant]
     Active Substance: LEVOMENTHOL
     Dosage: CREME, 10 MG/G (MILLIGRAM PER GRAM), UNIT DOSE : 1 DOSAGE FORM
  7. KOOLTEER/ZINKOXIDE [Concomitant]
     Dosage: SHAMPOO 75/15, UNIT DOSE ; 1 DOSAGE FORM
  8. SACUBITRIL/VALSARTAN [Concomitant]
     Active Substance: SACUBITRIL\VALSARTAN
     Dosage: TABLET, 97/103 MG (MILLIGRAM), UNIT DOSE : 1 DOSAGE FORM
  9. PREDNISOLON [Concomitant]
     Active Substance: PREDNISOLONE
     Dosage: TABLET, 5 MG (MILLIGRAM)
  10. CARVEDILOL. [Concomitant]
     Active Substance: CARVEDILOL
     Dosage: TABLET, 25 MG (MILLIGRAM)
  11. LANOXIN (DIGOXINE) [Concomitant]
     Dosage: TABLET, 62,5 ?G (MICROGRAM)
  12. ATORVASTATINE [Concomitant]
     Active Substance: ATORVASTATIN
     Dosage: TABLET, 10 MG (MILLIGRAM)
  13. CLOBETASOL [Concomitant]
     Active Substance: CLOBETASOL
     Dosage: CREME, 0,5 MG/G (MILLIGRAM PER GRAM), UNIT DOSE ; 1 DOSAGE FORM
  14. ALFACALCIDOL [Concomitant]
     Active Substance: ALFACALCIDOL
     Dosage: CAPSULE, 0,25 ?G (MICROGRAM)
  15. APIXABAN [Concomitant]
     Active Substance: APIXABAN
     Dosage: TABLET, 2,5 MG (MILLIGRAM)
  16. FAMOTIDINE. [Concomitant]
     Active Substance: FAMOTIDINE
     Dosage: TABLET, 20 MG (MILLIGRAM)
  17. EPLERENON [Concomitant]
     Active Substance: EPLERENONE
     Dosage: TABLET, 25 MG (MILLIGRAM)

REACTIONS (2)
  - Hypocalcaemia [Recovered/Resolved]
  - Hypomagnesaemia [Recovered/Resolved]
